FAERS Safety Report 9969179 (Version 1)
Quarter: 2014Q1

REPORT INFORMATION
  Report Type: Spontaneous
  Country: US (occurrence: US)
  Receive Date: 20140306
  Receipt Date: 20140306
  Transmission Date: 20141002
  Serious: No
  Sender: FDA-Public Use
  Company Number: US-ABBVIE-13P-163-1145335-00

PATIENT
  Age: 22 Year
  Sex: Female
  Weight: 65.83 kg

DRUGS (9)
  1. HUMIRA [Suspect]
     Indication: PRODUCT USED FOR UNKNOWN INDICATION
     Dates: start: 201306, end: 201306
  2. HUMIRA [Suspect]
     Dates: start: 201306, end: 201306
  3. HUMIRA [Suspect]
     Dates: start: 201307
  4. SPRINTEC [Concomitant]
     Indication: CONTRACEPTION
  5. FOLIC ACID [Concomitant]
     Indication: VITAMIN SUPPLEMENTATION
  6. BENICAR [Concomitant]
     Indication: HYPERTENSION
  7. OMEPRAZOLE [Concomitant]
     Indication: NAUSEA
  8. HYDROXYCHLOROQUINE [Concomitant]
     Indication: ARTHRALGIA
  9. ZOLOFT [Concomitant]
     Indication: ANXIETY

REACTIONS (3)
  - Device leakage [Unknown]
  - Injection site pain [Not Recovered/Not Resolved]
  - Diarrhoea [Not Recovered/Not Resolved]
